FAERS Safety Report 24642452 (Version 1)
Quarter: 2024Q4

REPORT INFORMATION
  Report Type: Spontaneous
  Country: US (occurrence: US)
  Receive Date: 20241120
  Receipt Date: 20241120
  Transmission Date: 20250115
  Serious: Yes (Death, Life-Threatening, Other)
  Sender: MALLINCKRODT
  Company Number: US-MALLINCKRODT-MNK202406506

PATIENT
  Age: 43 Year
  Sex: Female

DRUGS (2)
  1. TERLIPRESSIN [Suspect]
     Active Substance: TERLIPRESSIN
     Indication: Product used for unknown indication
     Dosage: UNKNOWN
     Dates: start: 20240826, end: 20240828
  2. ALBUMIN HUMAN [Concomitant]
     Active Substance: ALBUMIN HUMAN
     Route: 042
     Dates: start: 20240828

REACTIONS (4)
  - Death [Fatal]
  - Pulmonary oedema [Not Recovered/Not Resolved]
  - Spontaneous bacterial peritonitis [Unknown]
  - Multiple organ dysfunction syndrome [Not Recovered/Not Resolved]

NARRATIVE: CASE EVENT DATE: 20240101
